FAERS Safety Report 6845189-X (Version None)
Quarter: 2010Q3

REPORT INFORMATION
  Report Type: 
  Country: None (occurrence: None)
  Receive Date: 20100715
  Receipt Date: 20070816
  Transmission Date: 20110219
  Serious: No
  Sender: FDA-Public Use
  Company Number: US-PFIZER INC-2007068968

PATIENT
  Sex: Female
  Weight: 56.4 kg

DRUGS (2)
  1. CHANTIX [Suspect]
     Indication: SMOKING CESSATION THERAPY
     Dates: start: 20070807
  2. FIORICET [Concomitant]
     Indication: HEADACHE

REACTIONS (7)
  - ANXIETY [None]
  - DEPRESSION [None]
  - DIARRHOEA [None]
  - DYSGEUSIA [None]
  - HEADACHE [None]
  - NERVOUSNESS [None]
  - PSYCHIATRIC SYMPTOM [None]
